FAERS Safety Report 12640730 (Version 1)
Quarter: 2016Q3

REPORT INFORMATION
  Report Type: Spontaneous
  Country: FR (occurrence: FR)
  Receive Date: 20160810
  Receipt Date: 20160810
  Transmission Date: 20161109
  Serious: Yes (Other)
  Sender: FDA-Public Use
  Company Number: FR-TEVA-681668ISR

PATIENT
  Age: 18 Year
  Sex: Female

DRUGS (3)
  1. STRESAM [Suspect]
     Active Substance: ETIFOXINE
     Dosage: 1 DOSAGE FORMS DAILY;
     Route: 048
     Dates: start: 20160408, end: 20160511
  2. LEELOO 0,1 MG/0,02 MG [Suspect]
     Active Substance: ETHINYL ESTRADIOL\LEVONORGESTREL
     Dosage: 1 DOSAGE FORM= 0.02 MG ETHINYLESTRADIOL + 0.1 MG LEVONORGESTREL
     Route: 048
     Dates: start: 2015, end: 20160511
  3. SEROPLEX [Suspect]
     Active Substance: ESCITALOPRAM OXALATE
     Dosage: 1 DOSAGE FORMS DAILY;
     Route: 048
     Dates: start: 20160408, end: 20160511

REACTIONS (1)
  - Erythema nodosum [Recovered/Resolved]

NARRATIVE: CASE EVENT DATE: 20160505
